FAERS Safety Report 8302836-3 (Version None)
Quarter: 2012Q2

REPORT INFORMATION
  Report Type: 
  Country: None (occurrence: None)
  Receive Date: 20120420
  Receipt Date: 20120412
  Transmission Date: 20120825
  Serious: Yes (Hospitalization)
  Sender: FDA-Public Use
  Company Number: CA-ROCHE-1059526

PATIENT
  Sex: Male
  Weight: 124.85 kg

DRUGS (21)
  1. FOLIC ACID [Concomitant]
  2. DIAMICRON [Concomitant]
  3. BISOPROLOL FUMARATE [Concomitant]
  4. ASCORBIC ACID [Concomitant]
  5. CALCIUM NOS/MAGNESIUM NOS [Concomitant]
  6. OMEGA 3-6-9 [Concomitant]
  7. PREDNISONE TAB [Concomitant]
  8. EFFEXOR [Concomitant]
  9. SPIRONOLACTONE [Concomitant]
  10. ATORVASTATIN [Concomitant]
  11. VITAMIN B COMPLEX CAP [Concomitant]
  12. VITALUX PLUS [Concomitant]
  13. HALIBUT OIL [Concomitant]
  14. FUROSEMIDE [Concomitant]
  15. HYDRALAZINE HCL [Concomitant]
  16. DIOVAN [Concomitant]
  17. HUMULIN N [Concomitant]
  18. ARAVA [Concomitant]
  19. ACTEMRA [Suspect]
     Indication: RHEUMATOID ARTHRITIS
     Route: 042
     Dates: start: 20120327
  20. LEVOTHYROXINE SODIUM [Concomitant]
  21. ACETYLSALICYLIC ACID SRT [Concomitant]

REACTIONS (2)
  - HYPERGLYCAEMIA [None]
  - ULCER HAEMORRHAGE [None]
